FAERS Safety Report 21005463 (Version 1)
Quarter: 2022Q2

REPORT INFORMATION
  Report Type: Spontaneous
  Country: US (occurrence: US)
  Receive Date: 20220624
  Receipt Date: 20220624
  Transmission Date: 20220721
  Serious: No
  Sender: FDA-Public Use
  Company Number: US-UPSHER-SMITH LABORATORIES, LLC-2022USL00016

PATIENT
  Sex: Female

DRUGS (1)
  1. BETHANECHOL CHLORIDE [Suspect]
     Active Substance: BETHANECHOL CHLORIDE
     Indication: Dysuria

REACTIONS (1)
  - Drug ineffective [Unknown]
